FAERS Safety Report 8745884 (Version 2)
Quarter: 2012Q4

REPORT INFORMATION
  Report Type: 
  Country: US (occurrence: US)
  Receive Date: 20120827
  Receipt Date: 20120914
  Transmission Date: 20130627
  Serious: No
  Sender: FDA-Public Use
  Company Number: US-PFIZER INC-2012207698

PATIENT
  Age: 67 Year
  Sex: Female
  Weight: 74.83 kg

DRUGS (6)
  1. SUTENT [Suspect]
     Indication: METASTATIC RENAL CELL CARCINOMA
     Dosage: 25 mg, 1x/day, 21 days active followed by seven days rest
     Dates: start: 20120808, end: 20120820
  2. SUTENT [Suspect]
     Indication: BREAST CANCER
     Dosage: 25 mg, alternate day
     Dates: start: 20120823, end: 20120905
  3. WARFARIN [Concomitant]
  4. LISINOPRIL [Concomitant]
  5. VITAMIN B12 [Concomitant]
     Dosage: 500 mg, UNK
  6. GLUCOSAMINE /CHONDROITIN [Concomitant]

REACTIONS (2)
  - Diarrhoea [Recovered/Resolved]
  - Heart rate increased [Unknown]
